FAERS Safety Report 6614077-6 (Version None)
Quarter: 2010Q1

REPORT INFORMATION
  Report Type: 
  Country: None (occurrence: None)
  Receive Date: 20100304
  Receipt Date: 20100222
  Transmission Date: 20100710
  Serious: Yes (Other)
  Sender: FDA-Public Use
  Company Number: US-JNJFOC-20100111085

PATIENT
  Sex: Male

DRUGS (1)
  1. NUCYNTA [Suspect]
     Indication: PAIN
     Dosage: 1-2 TABLETS EVERY 6 HOURS, AS NEEDED
     Route: 048

REACTIONS (2)
  - AGGRESSION [None]
  - HALLUCINATION [None]
